FAERS Safety Report 6137487-2 (Version None)
Quarter: 2009Q1

REPORT INFORMATION
  Report Type: 
  Country: None (occurrence: None)
  Receive Date: 20090326
  Receipt Date: 20090305
  Transmission Date: 20090719
  Serious: Yes (Hospitalization)
  Sender: FDA-Public Use
  Company Number: 2009EU000973

PATIENT
  Age: 60 Year
  Sex: 0
  Weight: 57.9 kg

DRUGS (2)
  1. PROGRAF [Suspect]
     Indication: LIVER TRANSPLANT
     Dosage: 7 MG,  /D, ORAL
     Route: 048
     Dates: start: 20080927
  2. PREDNISOLONE [Suspect]
     Indication: LIVER TRANSPLANT
     Dosage: 7.5 MG,  /D,
     Dates: start: 20080528

REACTIONS (2)
  - CHOLESTASIS [None]
  - LIVER DISORDER [None]
